FAERS Safety Report 22203602 (Version 1)
Quarter: 2023Q2

REPORT INFORMATION
  Report Type: Report from Study
  Country: US (occurrence: US)
  Receive Date: 20230412
  Receipt Date: 20230412
  Transmission Date: 20230721
  Serious: Yes (Other)
  Sender: FDA-Public Use
  Company Number: US-002147023-NVSC2023US082083

PATIENT
  Age: 46 Year
  Sex: Male

DRUGS (1)
  1. ENTRESTO [Suspect]
     Active Substance: SACUBITRIL\VALSARTAN
     Indication: Stent placement
     Dosage: 1 DOSAGE FORM, BID
     Route: 048
     Dates: start: 202303

REACTIONS (7)
  - End stage renal disease [Unknown]
  - Renal failure [Unknown]
  - Respiratory failure [Unknown]
  - Weight increased [Unknown]
  - Limb discomfort [Unknown]
  - Taste disorder [Unknown]
  - Product use in unapproved indication [Unknown]

NARRATIVE: CASE EVENT DATE: 20230301
